FAERS Safety Report 5456905-6 (Version None)
Quarter: 2007Q3

REPORT INFORMATION
  Report Type: 
  Country: None (occurrence: None)
  Receive Date: 20070917
  Receipt Date: 20070917
  Transmission Date: 20080115
  Serious: No
  Sender: FDA-Public Use
  Company Number: None

PATIENT
  Age: 48 Year
  Sex: Male
  Weight: 88.4514 kg

DRUGS (1)
  1. FEXOFENADINE HCL [Suspect]

REACTIONS (1)
  - PHARMACEUTICAL PRODUCT COMPLAINT [None]
